FAERS Safety Report 13707769 (Version 20)
Quarter: 2019Q1

REPORT INFORMATION
  Report Type: Spontaneous
  Country: CA (occurrence: CA)
  Receive Date: 20170630
  Receipt Date: 20190328
  Transmission Date: 20190417
  Serious: Yes (Hospitalization, Other)
  Sender: FDA-Public Use
  Company Number: CA-CELLTRION INC.-2017CA005505

PATIENT

DRUGS (20)
  1. INFLECTRA [Suspect]
     Active Substance: INFLIXIMAB-DYYB
     Indication: PSORIATIC ARTHROPATHY
     Dosage: 300 MG, EVERY 0, 2, 6 WEEKS, THEN EVRY 8 WEEKS FOR 12 MONTHS
     Route: 042
     Dates: start: 20170425, end: 20170814
  2. RUPALL [Concomitant]
     Active Substance: RUPATADINE FUMARATE
     Dosage: 10 MG, 2 TABS BEFORE THE INFUSION
  3. SULFASALAZINE (ENTERIC COATED) [Concomitant]
     Active Substance: SULFASALAZINE
     Dosage: UNK
     Dates: start: 201711
  4. INFLECTRA [Suspect]
     Active Substance: INFLIXIMAB-DYYB
     Dosage: 5 MG/KG, (EVERY 5  WEEKS)
     Route: 042
     Dates: start: 20181128
  5. SOLU-CORTEF [Concomitant]
     Active Substance: HYDROCORTISONE SODIUM SUCCINATE
     Route: 065
  6. INFLECTRA [Suspect]
     Active Substance: INFLIXIMAB-DYYB
     Dosage: 5 MG/KG, (EVERY 5  WEEKS)
     Route: 042
     Dates: start: 20181029
  7. INFLECTRA [Suspect]
     Active Substance: INFLIXIMAB-DYYB
     Dosage: 5 MG/KG EVERY 6 WEEKS
     Route: 042
     Dates: start: 20171221, end: 20180426
  8. INFLECTRA [Suspect]
     Active Substance: INFLIXIMAB-DYYB
     Dosage: 5 MG/KG EVERY 6 WEEKS
     Route: 042
     Dates: start: 20180201
  9. INFLECTRA [Suspect]
     Active Substance: INFLIXIMAB-DYYB
     Dosage: 5 MG/KG EVERY 6 WEEKS
     Route: 042
     Dates: start: 20180426, end: 20180426
  10. INFLECTRA [Suspect]
     Active Substance: INFLIXIMAB-DYYB
     Dosage: 5 MG, CYCLIC, EVERY 5 WEEKS
     Route: 042
     Dates: start: 20190102
  11. HYDROCORTISONE. [Concomitant]
     Active Substance: HYDROCORTISONE
     Dosage: 100 MG, UNK
  12. INFLECTRA [Suspect]
     Active Substance: INFLIXIMAB-DYYB
     Dosage: 3 MG/KG, (EVERY 6 WEEKS)
     Route: 042
     Dates: start: 2017
  13. INFLECTRA [Suspect]
     Active Substance: INFLIXIMAB-DYYB
     Dosage: 3 MG/KG EVERY 8 WEEKS
     Route: 042
     Dates: start: 20171005, end: 20171116
  14. INFLECTRA [Suspect]
     Active Substance: INFLIXIMAB-DYYB
     Dosage: 5 MG/KG (EVERY 5  WEEKS)
     Route: 042
     Dates: start: 20180607
  15. DIPHENHYDRAMINE. [Concomitant]
     Active Substance: DIPHENHYDRAMINE
     Dosage: 50 MG, UNK
     Route: 042
  16. INFLECTRA [Suspect]
     Active Substance: INFLIXIMAB-DYYB
     Dosage: 3 MG/KG, EVERY 0, 2, 6 WEEKS, THEN EVERY 8 WEEKS
     Route: 042
     Dates: start: 2017, end: 2017
  17. METHOTREXATE. [Concomitant]
     Active Substance: METHOTREXATE
     Dosage: 25 MG, WEEKLY
  18. TYLENOL/00020001/ [Concomitant]
     Dosage: 1 G, BEFORE THE INFUSION
     Route: 048
  19. SOLU-MEDROL [Concomitant]
     Active Substance: METHYLPREDNISOLONE SODIUM SUCCINATE
     Dosage: 100 MG, BEFORE THE INFUSION
  20. INFLECTRA [Suspect]
     Active Substance: INFLIXIMAB-DYYB
     Dosage: 5 MG/KG, (EVERY 5  WEEKS)
     Route: 042
     Dates: start: 20181029

REACTIONS (26)
  - Gait inability [Not Recovered/Not Resolved]
  - Arthritis [Unknown]
  - Pruritus [Recovered/Resolved]
  - Paranasal sinus discomfort [Unknown]
  - Tremor [Unknown]
  - Hypoaesthesia oral [Unknown]
  - Drug effect decreased [Unknown]
  - Nasal congestion [Recovered/Resolved]
  - Fall [Unknown]
  - Hypertension [Unknown]
  - Hypoaesthesia [Unknown]
  - Intentional product use issue [Unknown]
  - General physical health deterioration [Not Recovered/Not Resolved]
  - Pain [Not Recovered/Not Resolved]
  - Joint swelling [Not Recovered/Not Resolved]
  - Hyperhidrosis [Unknown]
  - Pyrexia [Recovered/Resolved]
  - Head discomfort [Unknown]
  - Osteoarthritis [Unknown]
  - Intermittent claudication [Unknown]
  - Headache [Not Recovered/Not Resolved]
  - Rash pruritic [Recovered/Resolved]
  - Viral infection [Unknown]
  - Arthralgia [Unknown]
  - Dizziness [Recovered/Resolved]
  - Weight increased [Not Recovered/Not Resolved]

NARRATIVE: CASE EVENT DATE: 2017
